FAERS Safety Report 9531876 (Version 1)
Quarter: 2013Q3

REPORT INFORMATION
  Report Type: Spontaneous
  Country: US (occurrence: US)
  Receive Date: 20130918
  Receipt Date: 20130918
  Transmission Date: 20140515
  Serious: No
  Sender: FDA-Public Use
  Company Number: US-PFIZER INC-2013267686

PATIENT
  Age: 95 Year
  Sex: Female

DRUGS (5)
  1. ATORVASTATIN CALCIUM [Suspect]
     Indication: BLOOD CHOLESTEROL INCREASED
     Dosage: 10 MG, 1X/DAY
     Route: 048
  2. AMLODIPINE [Concomitant]
     Indication: HYPERTENSION
     Dosage: UNK
  3. LUMIGAN [Concomitant]
     Dosage: UNK
     Route: 047
  4. DORZOLAMIDE [Concomitant]
     Dosage: UNK
     Route: 047
  5. XANAX [Concomitant]
     Dosage: 0.5 MG (BY CUTTING 1 MG INTO HALF), UNK

REACTIONS (1)
  - Muscle spasms [Not Recovered/Not Resolved]
